FAERS Safety Report 15506473 (Version 1)
Quarter: 2018Q4

REPORT INFORMATION
  Report Type: Spontaneous
  Country: GB (occurrence: GB)
  Receive Date: 20181016
  Receipt Date: 20181016
  Transmission Date: 20190205
  Serious: Yes (Other)
  Sender: FDA-Public Use
  Company Number: GB-TEVA-2018-GB-963782

PATIENT
  Age: 72 Year
  Sex: Female

DRUGS (1)
  1. CLARITHROMYCIN. [Suspect]
     Active Substance: CLARITHROMYCIN
     Dosage: 1000 MILLIGRAM DAILY;
     Route: 042
     Dates: start: 20170303

REACTIONS (4)
  - Diarrhoea [Unknown]
  - Nausea [Unknown]
  - Vomiting [Unknown]
  - Documented hypersensitivity to administered product [Unknown]

NARRATIVE: CASE EVENT DATE: 20170303
